FAERS Safety Report 10545061 (Version 2)
Quarter: 2014Q4

REPORT INFORMATION
  Report Type: Spontaneous
  Country: CN (occurrence: CN)
  Receive Date: 20141027
  Receipt Date: 20141027
  Transmission Date: 20150529
  Serious: Yes (Hospitalization)
  Sender: FDA-Public Use
  Company Number: CN-ASTRAZENECA-2014SE62591

PATIENT
  Age: 14901 Day
  Sex: Female

DRUGS (2)
  1. NEXIUM [Suspect]
     Active Substance: ESOMEPRAZOLE MAGNESIUM
     Indication: GASTRITIS
     Route: 048
     Dates: start: 20140717
  2. ROTUNDIN [Concomitant]

REACTIONS (1)
  - Acquired epidermolysis bullosa [Unknown]

NARRATIVE: CASE EVENT DATE: 20140728
